FAERS Safety Report 8192109-4 (Version None)
Quarter: 2012Q1

REPORT INFORMATION
  Report Type: 
  Country: None (occurrence: None)
  Receive Date: 20120307
  Receipt Date: 20120304
  Transmission Date: 20120608
  Serious: Yes (Hospitalization, Other)
  Sender: FDA-Public Use
  Company Number: US-PFIZER INC-2012058321

PATIENT

DRUGS (1)
  1. LYRICA [Suspect]
     Dosage: 150 MG, 2X/DAY
     Dates: start: 20080101

REACTIONS (10)
  - ANXIETY [None]
  - OEDEMA [None]
  - SUICIDAL IDEATION [None]
  - COLD SWEAT [None]
  - NAUSEA [None]
  - CLAUSTROPHOBIA [None]
  - HYPERHIDROSIS [None]
  - NIGHTMARE [None]
  - CONVERSION DISORDER [None]
  - FEELING ABNORMAL [None]
